FAERS Safety Report 18364124 (Version 1)
Quarter: 2020Q4

REPORT INFORMATION
  Report Type: Spontaneous
  Country: DE (occurrence: DE)
  Receive Date: 20201009
  Receipt Date: 20201009
  Transmission Date: 20210114
  Serious: Yes (Other)
  Sender: FDA-Public Use
  Company Number: DE-LUPIN PHARMACEUTICALS INC.-2020-06932

PATIENT
  Age: 39 Year
  Sex: Female

DRUGS (1)
  1. LEVONORGESTREL. [Suspect]
     Active Substance: LEVONORGESTREL
     Indication: INTRAUTERINE CONTRACEPTION
     Dosage: UNK-LONG-TERM
     Route: 015
     Dates: start: 200911, end: 201807

REACTIONS (11)
  - Mixed anxiety and depressive disorder [Recovered/Resolved]
  - Affect lability [Recovered/Resolved]
  - Condition aggravated [Recovered/Resolved]
  - Suicidal ideation [Recovered/Resolved]
  - Pelvic pain [Unknown]
  - Psychomotor hyperactivity [Unknown]
  - Somatic symptom disorder [Unknown]
  - Panic attack [Recovered/Resolved]
  - Sleep disorder [Recovered/Resolved]
  - Supraventricular extrasystoles [Unknown]
  - Tachycardia [Unknown]

NARRATIVE: CASE EVENT DATE: 201501
